FAERS Safety Report 26124664 (Version 1)
Quarter: 2025Q4

REPORT INFORMATION
  Report Type: Spontaneous
  Country: GB (occurrence: GB)
  Receive Date: 20251205
  Receipt Date: 20251205
  Transmission Date: 20260117
  Serious: Yes (Hospitalization)
  Sender: HETERO
  Company Number: None

PATIENT
  Age: 72 Year
  Sex: Male

DRUGS (1)
  1. LOSARTAN [Suspect]
     Active Substance: LOSARTAN
     Indication: Product used for unknown indication
     Dosage: UNK
     Route: 065

REACTIONS (6)
  - Rhinorrhoea [Recovered/Resolved]
  - Constipation [Recovered/Resolved]
  - Tinnitus [Recovered/Resolved]
  - Somnolence [Recovered/Resolved]
  - Abdominal pain [Recovered/Resolved]
  - Back pain [Recovered/Resolved]
